FAERS Safety Report 23586420 (Version 1)
Quarter: 2024Q1

REPORT INFORMATION
  Report Type: Spontaneous
  Country: PT (occurrence: PT)
  Receive Date: 20240301
  Receipt Date: 20240301
  Transmission Date: 20240409
  Serious: Yes (Other)
  Sender: FDA-Public Use
  Company Number: PT-PFIZER INC-202400053863

PATIENT
  Age: 65 Year
  Sex: Male

DRUGS (4)
  1. METHYLPREDNISOLONE SODIUM SUCCINATE [Suspect]
     Active Substance: METHYLPREDNISOLONE SODIUM SUCCINATE
     Indication: Raynaud^s phenomenon
     Dosage: 500 MG, 3 INFUSIONS
  2. PREDNISOLONE [Suspect]
     Active Substance: PREDNISOLONE
     Indication: Raynaud^s phenomenon
     Dosage: 30 MG, TAPERED DOWN
  3. METHOTREXATE SODIUM [Concomitant]
     Active Substance: METHOTREXATE SODIUM
     Indication: Raynaud^s phenomenon
     Dosage: 25 MG, WEEKLY
     Route: 058
  4. HYDROXYCHLOROQUINE [Concomitant]
     Active Substance: HYDROXYCHLOROQUINE
     Indication: Raynaud^s phenomenon
     Dosage: 400 MG, DAILY

REACTIONS (2)
  - Iridocyclitis [Unknown]
  - Off label use [Unknown]
